FAERS Safety Report 11583988 (Version 1)
Quarter: 2015Q3

REPORT INFORMATION
  Report Type: Spontaneous
  Country: None (occurrence: None)
  Receive Date: 20150930
  Receipt Date: 20150930
  Transmission Date: 20151125
  Serious: No
  Sender: FDA-Public Use
  Company Number: None

PATIENT
  Age: 63 Year
  Sex: Female
  Weight: 68 kg

DRUGS (25)
  1. CEFOXITIN [Concomitant]
     Active Substance: CEFOXITIN\CEFOXITIN SODIUM
  2. CHOLESTYRAMINE-ASPARTAME [Concomitant]
  3. CLONAZEPAM. [Concomitant]
     Active Substance: CLONAZEPAM
  4. LINEZOLID. [Concomitant]
     Active Substance: LINEZOLID
  5. NORCO [Concomitant]
     Active Substance: ACETAMINOPHEN\HYDROCODONE BITARTRATE
  6. AMIKACIN [Suspect]
     Active Substance: AMIKACIN
     Indication: CULTURE WOUND POSITIVE
     Route: 042
     Dates: start: 20150917, end: 20150919
  7. INSULIN ASPART [Concomitant]
     Active Substance: INSULIN ASPART
  8. LEVEMIR [Concomitant]
     Active Substance: INSULIN DETEMIR
  9. METOPROLOL SUCCINATE. [Concomitant]
     Active Substance: METOPROLOL SUCCINATE
  10. DOXYCYCLINE HYCLATE. [Concomitant]
     Active Substance: DOXYCYCLINE HYCLATE
  11. ENOXAPARIN [Concomitant]
     Active Substance: ENOXAPARIN
  12. PREDNISONE. [Concomitant]
     Active Substance: PREDNISONE
  13. CITALOPRAM [Concomitant]
     Active Substance: CITALOPRAM HYDROBROMIDE
  14. FAMOTIDINE. [Concomitant]
     Active Substance: FAMOTIDINE
  15. ASA [Concomitant]
     Active Substance: ASPIRIN
  16. BUDESONIDE. [Concomitant]
     Active Substance: BUDESONIDE
  17. MYCOPHENOLATE MOFETIL. [Concomitant]
     Active Substance: MYCOPHENOLATE MOFETIL
  18. VITAMIN D3 [Concomitant]
     Active Substance: CHOLECALCIFEROL
  19. LEVOTHYROXINE. [Concomitant]
     Active Substance: LEVOTHYROXINE
  20. POLYCAROPHIL CALCIUM [Concomitant]
  21. AMIKACIN [Suspect]
     Active Substance: AMIKACIN
     Indication: BACTERIAL INFECTION
     Route: 042
     Dates: start: 20150917, end: 20150919
  22. HEPARIN [Concomitant]
     Active Substance: HEPARIN SODIUM
  23. TACROLIMUS. [Concomitant]
     Active Substance: TACROLIMUS
  24. BACTRIM DS [Concomitant]
     Active Substance: SULFAMETHOXAZOLE\TRIMETHOPRIM
  25. MAGNESIUM HYDROXIDE. [Concomitant]
     Active Substance: MAGNESIUM HYDROXIDE

REACTIONS (2)
  - Blood creatinine increased [None]
  - Nephropathy toxic [None]

NARRATIVE: CASE EVENT DATE: 20150919
